FAERS Safety Report 10175802 (Version 1)
Quarter: 2014Q2

REPORT INFORMATION
  Report Type: Spontaneous
  Country: US (occurrence: None)
  Receive Date: 20140416
  Receipt Date: 20140416
  Transmission Date: 20141212
  Serious: Yes (Other)
  Sender: FDA-Public Use
  Company Number: 163-POMAL-14011035

PATIENT
  Age: 71 Year
  Sex: Male
  Weight: 99.8 kg

DRUGS (11)
  1. POMALYST (POMALIDOMIDE) [Suspect]
     Indication: PLASMA CELL MYELOMA
     Route: 048
     Dates: start: 20131114, end: 20140107
  2. FLUOXETINE HCL (FLUOXETINE HYDROCHLORIDE) [Concomitant]
  3. PIGLITAZONE HCL [Concomitant]
  4. ACYCLOVIR (ACICLOVIR) (ACICLOVIR) [Concomitant]
  5. LOSARTAN POTASSIUM [Concomitant]
  6. PRAMIPEXOLE DIHYDROCHLORIDE (PRAMIPEXOLE DIHYDROCHLORIDE) [Concomitant]
  7. TRAVATAN Z (TRAVOPROST) [Concomitant]
  8. DEXAMETHASONE [Concomitant]
  9. HYDROCODONE-ACETAMINOPHEN (REMDEINE) [Concomitant]
  10. HUMALOG (INSULIN LISPRO) [Concomitant]
  11. MELOXICAM [Concomitant]

REACTIONS (1)
  - Blood glucose abnormal [None]
